FAERS Safety Report 6840386-1 (Version None)
Quarter: 2010Q3

REPORT INFORMATION
  Report Type: 
  Country: None (occurrence: None)
  Receive Date: 20100714
  Receipt Date: 20100709
  Transmission Date: 20110219
  Serious: Yes (Hospitalization)
  Sender: FDA-Public Use
  Company Number: SE-BRISTOL-MYERS SQUIBB COMPANY-15186646

PATIENT
  Age: 23 Year
  Sex: Female

DRUGS (4)
  1. ABILIFY [Suspect]
     Indication: PSYCHOTIC DISORDER
     Dates: start: 20100330, end: 20100520
  2. LERGIGAN [Concomitant]
     Dosage: FORMULATION = FILM COATED TABS
  3. OXAZEPAM [Concomitant]
     Dosage: FORMULATION = TABS
  4. STILNOCT [Concomitant]
     Dosage: FORMULATION = FILM COATED TABS

REACTIONS (1)
  - VENOUS THROMBOSIS LIMB [None]
